FAERS Safety Report 11870325 (Version 2)
Quarter: 2015Q4

REPORT INFORMATION
  Report Type: Spontaneous
  Country: SY (occurrence: SY)
  Receive Date: 20151228
  Receipt Date: 20151231
  Transmission Date: 20160305
  Serious: Yes (Hospitalization)
  Sender: FDA-Public Use
  Company Number: PHHY2014SY181072

PATIENT
  Age: 26 Year
  Sex: Female

DRUGS (1)
  1. REVOLADE [Suspect]
     Active Substance: ELTROMBOPAG
     Indication: THROMBOCYTOPENIA
     Dosage: 75 MG, QD
     Route: 065
     Dates: start: 201303, end: 20140422

REACTIONS (3)
  - Normal newborn [Unknown]
  - Delivery [Unknown]
  - Maternal exposure during pregnancy [Unknown]
